FAERS Safety Report 7384021-5 (Version None)
Quarter: 2011Q1

REPORT INFORMATION
  Report Type: 
  Country: None (occurrence: None)
  Receive Date: 20110330
  Receipt Date: 20110328
  Transmission Date: 20110831
  Serious: Yes (Life-Threatening, Hospitalization, Other)
  Sender: FDA-Public Use
  Company Number: SE-NAPPMUNDI-GBR-2011-0007989

PATIENT
  Sex: Female

DRUGS (12)
  1. METHADON [Suspect]
     Indication: PRODUCT USED FOR UNKNOWN INDICATION
     Dosage: 70 MG, DAILY
     Route: 048
  2. SIMVASTATIN [Concomitant]
     Dosage: UNK
  3. ENALAPRIL [Suspect]
     Indication: PRODUCT USED FOR UNKNOWN INDICATION
     Dosage: 20 MG, DAILY
     Route: 048
  4. TROMBYL [Concomitant]
     Dosage: UNK
  5. LANTUS [Concomitant]
     Dosage: UNK
  6. DOLCONTIN [Suspect]
     Indication: PRODUCT USED FOR UNKNOWN INDICATION
     Dosage: 50 MG, DAILY
     Route: 048
  7. VOLTAREN [Suspect]
     Indication: PRODUCT USED FOR UNKNOWN INDICATION
     Dosage: 150 MG, DAILY
     Route: 048
  8. ALVEDON [Concomitant]
     Dosage: UNK
  9. NOVORAPID [Concomitant]
     Dosage: UNK
  10. LYRICA [Suspect]
     Indication: PRODUCT USED FOR UNKNOWN INDICATION
     Dosage: UNK
  11. PAROXETINE HCL [Concomitant]
     Dosage: UNK
  12. THERALEN [Concomitant]
     Dosage: UNK

REACTIONS (8)
  - BACK PAIN [None]
  - RENAL FAILURE ACUTE [None]
  - FATIGUE [None]
  - DEPRESSED LEVEL OF CONSCIOUSNESS [None]
  - RESPIRATORY DEPRESSION [None]
  - METABOLIC ACIDOSIS [None]
  - UPPER LIMB FRACTURE [None]
  - ANURIA [None]
